FAERS Safety Report 9164889 (Version 3)
Quarter: 2013Q2

REPORT INFORMATION
  Report Type: Spontaneous
  Country: US (occurrence: US)
  Receive Date: 20130315
  Receipt Date: 20130506
  Transmission Date: 20140414
  Serious: Yes (Death, Other)
  Sender: FDA-Public Use
  Company Number: US-GENZYME-CERZ-1002847

PATIENT
  Sex: Male
  Weight: 62.22 kg

DRUGS (2)
  1. CEREZYME [Suspect]
     Indication: GAUCHER^S DISEASE
     Dosage: 4400 U, Q2W
     Route: 042
     Dates: start: 19920127, end: 20130307
  2. REVATIO [Suspect]
     Indication: PULMONARY ARTERIAL HYPERTENSION
     Dosage: UNK
     Route: 065

REACTIONS (4)
  - Blindness [Unknown]
  - Respiratory failure [Fatal]
  - Cardiac failure congestive [Fatal]
  - Pulmonary arterial hypertension [Fatal]
